FAERS Safety Report 13088724 (Version 1)
Quarter: 2017Q1

REPORT INFORMATION
  Report Type: Spontaneous
  Country: FR (occurrence: FR)
  Receive Date: 20170105
  Receipt Date: 20170105
  Transmission Date: 20170428
  Serious: Yes (Other)
  Sender: FDA-Public Use
  Company Number: FR-JNJFOC-20170101785

PATIENT
  Age: 28 Year
  Sex: Female

DRUGS (1)
  1. RISPERDAL [Suspect]
     Active Substance: RISPERIDONE
     Indication: PRODUCT USED FOR UNKNOWN INDICATION
     Route: 065

REACTIONS (12)
  - Depersonalisation/derealisation disorder [Unknown]
  - Insomnia [Unknown]
  - Muscular weakness [Unknown]
  - Weight increased [Unknown]
  - Urinary incontinence [Unknown]
  - Loss of libido [Unknown]
  - Cardiac disorder [Unknown]
  - Mental impairment [Unknown]
  - Amnesia [Unknown]
  - Breast cancer [Unknown]
  - Emotional poverty [Unknown]
  - Tremor [Unknown]

NARRATIVE: CASE EVENT DATE: 20150624
